FAERS Safety Report 23396306 (Version 1)
Quarter: 2024Q1

REPORT INFORMATION
  Report Type: Report from Study
  Country: CA (occurrence: CA)
  Receive Date: 20240112
  Receipt Date: 20240112
  Transmission Date: 20240410
  Serious: Yes (Other)
  Sender: FDA-Public Use
  Company Number: None

PATIENT
  Sex: Male

DRUGS (6)
  1. ATORVASTATIN [Suspect]
     Active Substance: ATORVASTATIN
     Indication: Product used for unknown indication
  2. OSIMERTINIB [Suspect]
     Active Substance: OSIMERTINIB
     Indication: Product used for unknown indication
     Route: 048
  3. APIXABAN [Concomitant]
     Active Substance: APIXABAN
  4. BECLOMETHASONE [Concomitant]
     Active Substance: BECLOMETHASONE
  5. LORATADINE [Concomitant]
     Active Substance: LORATADINE
  6. MEMANTINE [Concomitant]
     Active Substance: MEMANTINE

REACTIONS (8)
  - Agitation [Recovering/Resolving]
  - Cognitive disorder [Recovering/Resolving]
  - Delirium [Recovering/Resolving]
  - Drug interaction [Recovering/Resolving]
  - Fatigue [Recovering/Resolving]
  - Frustration tolerance decreased [Recovering/Resolving]
  - Metastases to central nervous system [Recovering/Resolving]
  - Thought blocking [Recovering/Resolving]
